FAERS Safety Report 16155467 (Version 2)
Quarter: 2025Q2

REPORT INFORMATION
  Report Type: Spontaneous
  Country: US (occurrence: US)
  Receive Date: 20190404
  Receipt Date: 20250523
  Transmission Date: 20250716
  Serious: Yes (Hospitalization)
  Sender: CSL BEHRING
  Company Number: US-BEH-2019100995

PATIENT
  Age: 27 Year
  Sex: Male

DRUGS (2)
  1. IDELVION [Suspect]
     Active Substance: COAGULATION FACTOR IX RECOMBINANT HUMAN
     Indication: Factor VIII deficiency
     Dosage: 3000 IU, UNK
     Route: 042
     Dates: start: 20140815
  2. IDELVION [Suspect]
     Active Substance: COAGULATION FACTOR IX RECOMBINANT HUMAN
     Indication: Factor VIII deficiency
     Dosage: 3000 IU, UNK
     Route: 042
     Dates: start: 20140815

REACTIONS (3)
  - Tooth extraction [Unknown]
  - Tooth socket haemorrhage [Unknown]
  - Off label use [Unknown]

NARRATIVE: CASE EVENT DATE: 20140815
